FAERS Safety Report 6809273-9 (Version None)
Quarter: 2010Q2

REPORT INFORMATION
  Report Type: 
  Country: None (occurrence: None)
  Receive Date: 20100630
  Receipt Date: 20100617
  Transmission Date: 20101027
  Serious: Yes (Other)
  Sender: FDA-Public Use
  Company Number: US-SOLVAY-00210003874

PATIENT
  Age: 23482 Day
  Sex: Male
  Weight: 68.181 kg

DRUGS (11)
  1. ALLERGY SHOTS [Concomitant]
     Indication: HYPERSENSITIVITY
     Dosage: DAILY DOSE:  UNKNOWN
     Route: 065
  2. METROGEL [Concomitant]
     Indication: ROSACEA
     Dosage: DAILY DOSE:  UNKNOWN
     Route: 061
     Dates: start: 20080101
  3. FLUOCINOLONE ACETONIDE [Concomitant]
     Indication: SEBORRHOEA
     Dosage: DAILY DOSE:  UNKNOWN
     Route: 061
     Dates: start: 20080101
  4. KEROL [Concomitant]
     Indication: HYPERKERATOSIS
     Dosage: DAILY DOSE:  UNKNOWN
     Route: 061
     Dates: start: 20080101
  5. FLUTICASONE [Concomitant]
     Indication: HYPERSENSITIVITY
     Dosage: DAILY DOSE:  UNKNOWN
     Route: 048
  6. QVAR 40 [Concomitant]
     Indication: OBSTRUCTIVE AIRWAYS DISORDER
     Dosage: DAILY DOSE:  UNKNOWN, ROUTE: INHALATION
     Route: 050
     Dates: start: 20090101
  7. PROVIGEL [Concomitant]
     Indication: HYPERSOMNIA
     Dosage: DAILY DOSE:  UNKNOWN
     Route: 048
     Dates: start: 20090901
  8. PLAVIX [Concomitant]
     Indication: ANTICOAGULANT THERAPY
     Dosage: DAILY DOSE:  UNKNOWN
     Route: 048
     Dates: start: 20100301
  9. LOSARTAN POTASSIUM [Concomitant]
     Indication: HYPERTENSION
     Dosage: DAILY DOSE:  UNKNOWN
     Route: 048
     Dates: start: 20080101
  10. SINEMET [Concomitant]
     Indication: PARKINSON'S DISEASE
     Dosage: DAILY DOSE:  UNKNOWN
     Route: 048
     Dates: start: 20080101
  11. ANDROGEL [Suspect]
     Indication: BLOOD TESTOSTERONE DECREASED
     Dosage: DAILY DOSE: 5 GRAM(S)
     Route: 062
     Dates: start: 20100430, end: 20100602

REACTIONS (1)
  - CHORIORETINOPATHY [None]
